FAERS Safety Report 11877105 (Version 1)
Quarter: 2015Q4

REPORT INFORMATION
  Report Type: Spontaneous
  Country: JP (occurrence: JP)
  Receive Date: 20151229
  Receipt Date: 20151229
  Transmission Date: 20160305
  Serious: Yes (Hospitalization)
  Sender: FDA-Public Use
  Company Number: JP-SHIONOGI, INC-2015001320

PATIENT
  Age: 50 Year
  Sex: Male

DRUGS (2)
  1. FINIBAX [Suspect]
     Active Substance: DORIPENEM MONOHYDRATE
     Indication: CHOLECYSTITIS ACUTE
     Dosage: 0.25 G, TID
     Route: 042
     Dates: start: 20151028, end: 20151103
  2. FINIBAX [Suspect]
     Active Substance: DORIPENEM MONOHYDRATE
     Dosage: 0.5 G, TID
     Route: 042
     Dates: start: 20151104, end: 20151111

REACTIONS (2)
  - Sepsis [Recovered/Resolved]
  - Hepatic function abnormal [Recovering/Resolving]

NARRATIVE: CASE EVENT DATE: 20151104
